FAERS Safety Report 8616452 (Version 5)
Quarter: 2019Q4

REPORT INFORMATION
  Report Type: Spontaneous
  Country: US (occurrence: US)
  Receive Date: 20120615
  Receipt Date: 20191212
  Transmission Date: 20200122
  Serious: Yes (Disabling, Other)
  Sender: FDA-Public Use
  Company Number: US-ASTRAZENECA-2012SE36408

PATIENT
  Age: 17456 Day
  Sex: Female
  Weight: 60.8 kg

DRUGS (28)
  1. LEVOXYL [Concomitant]
     Active Substance: LEVOTHYROXINE SODIUM
     Dosage: 50.0UG UNKNOWN
     Dates: start: 20121224
  2. MULTIVITAMIN [Concomitant]
     Active Substance: VITAMINS
  3. RANITIDINE. [Concomitant]
     Active Substance: RANITIDINE
  4. PREDNISONE. [Concomitant]
     Active Substance: PREDNISONE
     Dates: start: 20130506
  5. PREDNISONE. [Concomitant]
     Active Substance: PREDNISONE
     Dates: start: 20130506
  6. TOPROL XL [Concomitant]
     Active Substance: METOPROLOL SUCCINATE
     Indication: BLOOD PRESSURE MEASUREMENT
     Dosage: 25.0MG UNKNOWN
  7. NEXIUM [Suspect]
     Active Substance: ESOMEPRAZOLE MAGNESIUM
     Indication: GASTROOESOPHAGEAL REFLUX DISEASE
     Route: 048
  8. NEXIUM [Suspect]
     Active Substance: ESOMEPRAZOLE MAGNESIUM
     Indication: GASTROOESOPHAGEAL REFLUX DISEASE
     Route: 048
     Dates: start: 20120730
  9. ACYCLOVIR. [Concomitant]
     Active Substance: ACYCLOVIR
     Dates: start: 20130409
  10. CARISOPRODOL. [Concomitant]
     Active Substance: CARISOPRODOL
  11. PREDNISONE. [Concomitant]
     Active Substance: PREDNISONE
     Dates: start: 20130506
  12. TIZANIDINE HCL [Concomitant]
     Active Substance: TIZANIDINE HYDROCHLORIDE
     Dates: start: 20121108
  13. LEVOXYL [Concomitant]
     Active Substance: LEVOTHYROXINE SODIUM
     Dosage: 50.0MG UNKNOWN
  14. VITAMIN D [Concomitant]
     Active Substance: VITAMIN D NOS
     Dosage: 1000 I.U ONE A DAY
  15. NEXIUM [Suspect]
     Active Substance: ESOMEPRAZOLE MAGNESIUM
     Indication: GASTROOESOPHAGEAL REFLUX DISEASE
     Route: 048
     Dates: start: 2007, end: 2017
  16. LASIX [Concomitant]
     Active Substance: FUROSEMIDE
     Dosage: 40.0MG UNKNOWN
  17. TRAZODONE [Concomitant]
     Active Substance: TRAZODONE HYDROCHLORIDE
  18. FOSAMAX [Concomitant]
     Active Substance: ALENDRONATE SODIUM
  19. METOPROLOL TAR [Concomitant]
     Active Substance: METOPROLOL TARTRATE
     Dates: start: 20121029
  20. PROMETHAZINE [Concomitant]
     Active Substance: PROMETHAZINE HYDROCHLORIDE
     Indication: VOMITING
     Dates: start: 20120906
  21. NEXIUM [Suspect]
     Active Substance: ESOMEPRAZOLE MAGNESIUM
     Indication: GASTROOESOPHAGEAL REFLUX DISEASE
     Route: 048
     Dates: start: 20130121
  22. KLOR-CON [Concomitant]
     Active Substance: POTASSIUM CHLORIDE
     Dosage: 10.0MG UNKNOWN
  23. PROMETHAZINE [Concomitant]
     Active Substance: PROMETHAZINE HYDROCHLORIDE
     Indication: NAUSEA
     Dates: start: 20120906
  24. NEXIUM [Suspect]
     Active Substance: ESOMEPRAZOLE MAGNESIUM
     Indication: GASTROOESOPHAGEAL REFLUX DISEASE
     Route: 048
     Dates: start: 20120417
  25. LIPITOR [Concomitant]
     Active Substance: ATORVASTATIN CALCIUM
     Dosage: 10.0MG UNKNOWN
  26. KLOR-CON [Concomitant]
     Active Substance: POTASSIUM CHLORIDE
     Dosage: 10.0MEQ UNKNOWN
     Dates: start: 20121121
  27. PREDNISONE. [Concomitant]
     Active Substance: PREDNISONE
     Dates: start: 20130506
  28. QUETIAPINE FUMARATE. [Concomitant]
     Active Substance: QUETIAPINE FUMARATE
     Dates: start: 20130506

REACTIONS (7)
  - Osteoporosis [Unknown]
  - Nervousness [Unknown]
  - End stage renal disease [Unknown]
  - Arthritis [Unknown]
  - Calcium deficiency [Unknown]
  - Multiple fractures [Unknown]
  - Osteopenia [Unknown]

NARRATIVE: CASE EVENT DATE: 20071010
